FAERS Safety Report 9478377 (Version 2)
Quarter: 2013Q3

REPORT INFORMATION
  Report Type: Report from Study
  Country: FR (occurrence: FR)
  Receive Date: 20130827
  Receipt Date: 20130827
  Transmission Date: 20140515
  Serious: Yes (Other)
  Sender: FDA-Public Use
  Company Number: FR-ASTELLAS-2012EU010393

PATIENT
  Age: 30 Year
  Sex: Male
  Weight: 95 kg

DRUGS (5)
  1. TACROLIMUS MR4 CAPSULES [Suspect]
     Indication: RENAL TRANSPLANT
     Dosage: UNK
     Route: 065
  2. TACROLIMUS MR4 CAPSULES [Suspect]
     Dosage: 3 MG, UNKNOWN/D
     Route: 065
  3. TACROLIMUS MR4 CAPSULES [Suspect]
     Dosage: 3 MG, UNKNOWN/D
     Route: 065
  4. TACROLIMUS MR4 CAPSULES [Suspect]
     Dosage: 3 MG, UNKNOWN/D
     Route: 065
  5. MYCOPHENOLATE MOFETIL [Suspect]
     Dosage: UNK
     Route: 065

REACTIONS (2)
  - Expired drug administered [Recovered/Resolved]
  - Expired drug administered [Unknown]
